FAERS Safety Report 7638218-7 (Version None)
Quarter: 2011Q3

REPORT INFORMATION
  Report Type: 
  Country: None (occurrence: None)
  Receive Date: 20110722
  Receipt Date: 20110722
  Transmission Date: 20111222
  Serious: Yes (Hospitalization, Disabling)
  Sender: FDA-Public Use
  Company Number: None

PATIENT
  Sex: Female
  Weight: 44.4525 kg

DRUGS (1)
  1. BONIVA [Suspect]
     Indication: OSTEOPOROSIS
     Dosage: 150MG 1 X MONTH PILL MOUTH
     Route: 048
     Dates: start: 20050101, end: 20110101

REACTIONS (6)
  - FALL [None]
  - FEMUR FRACTURE [None]
  - WEIGHT BEARING DIFFICULTY [None]
  - HIP FRACTURE [None]
  - ARTHRALGIA [None]
  - POSTOPERATIVE FEVER [None]
